FAERS Safety Report 5075463-1 (Version None)
Quarter: 2006Q3

REPORT INFORMATION
  Report Type: 
  Country: None (occurrence: None)
  Receive Date: 20060809
  Receipt Date: 20060731
  Transmission Date: 20061208
  Serious: Yes (Other)
  Sender: FDA-Public Use
  Company Number: PHMT2006CA01588

PATIENT
  Age: 68 Year
  Sex: Female

DRUGS (1)
  1. DIOVAN [Suspect]
     Indication: HYPERTENSION
     Dosage: 160 MG,
     Route: 048
     Dates: start: 20040101

REACTIONS (3)
  - ANAEMIA MACROCYTIC [None]
  - BLOOD COUNT ABNORMAL [None]
  - NEUTROPHIL COUNT DECREASED [None]
